FAERS Safety Report 15945208 (Version 1)
Quarter: 2019Q1

REPORT INFORMATION
  Report Type: Spontaneous
  Country: GR (occurrence: GR)
  Receive Date: 20190211
  Receipt Date: 20190211
  Transmission Date: 20190417
  Serious: Yes (Other)
  Sender: FDA-Public Use
  Company Number: GR-SA-2019SA034743

PATIENT
  Age: 83 Year
  Sex: Female
  Weight: 61 kg

DRUGS (6)
  1. DAONIL [Suspect]
     Active Substance: GLYBURIDE
     Indication: DIABETES MELLITUS
     Dosage: 5 MG, QD
     Route: 048
     Dates: start: 2001, end: 20111021
  2. DIGOXIN. [Concomitant]
     Active Substance: DIGOXIN
     Dosage: 0.25 MG, QD
     Route: 048
     Dates: start: 2001
  3. DILATREND [Concomitant]
     Active Substance: CARVEDILOL
     Dosage: 3.1 MG, QD
     Route: 048
     Dates: start: 2006
  4. ALDACTONE [Concomitant]
     Active Substance: SPIRONOLACTONE
     Dosage: 12.5 MG, QOD
     Route: 048
     Dates: start: 2001
  5. RENITEC [ENALAPRILAT] [Concomitant]
     Dosage: 2.5 MG, QD
     Route: 048
     Dates: start: 2001
  6. LASIX [Concomitant]
     Active Substance: FUROSEMIDE
     Dosage: 80 MG, QD
     Route: 048
     Dates: start: 2001

REACTIONS (2)
  - Cardiac failure acute [Recovered/Resolved]
  - Drug resistance [Recovered/Resolved]
